FAERS Safety Report 11838389 (Version 3)
Quarter: 2016Q1

REPORT INFORMATION
  Report Type: Spontaneous
  Country: CH (occurrence: CH)
  Receive Date: 20151215
  Receipt Date: 20160123
  Transmission Date: 20160525
  Serious: Yes (Other)
  Sender: FDA-Public Use
  Company Number: CH-ENDO PHARMACEUTICALS INC.-2015-004909

PATIENT
  Age: 68 Year
  Sex: Male
  Weight: 73 kg

DRUGS (1)
  1. XIAPEX [Suspect]
     Active Substance: COLLAGENASE CLOSTRIDIUM HISTOLYTICUM
     Indication: DUPUYTREN^S CONTRACTURE
     Dosage: 0.58MG
     Route: 026
     Dates: start: 20151026, end: 20151026

REACTIONS (3)
  - Injection site haematoma [Unknown]
  - Haematoma [Unknown]
  - Periorbital haematoma [Recovered/Resolved]

NARRATIVE: CASE EVENT DATE: 20151029
